FAERS Safety Report 4551803-4 (Version None)
Quarter: 2005Q1

REPORT INFORMATION
  Report Type: 
  Country: None (occurrence: None)
  Receive Date: 20050111
  Receipt Date: 20041105
  Transmission Date: 20050727
  Serious: Yes (Life-Threatening)
  Sender: FDA-Public Use
  Company Number: 2004088855

PATIENT
  Age: 46 Year
  Sex: Female

DRUGS (3)
  1. MEDROL [Suspect]
     Indication: ARTHRITIS
     Dosage: 8 MG (1 IN 1 D) ORAL
     Route: 048
     Dates: start: 20040707
  2. CYCLOSPORINE [Suspect]
     Indication: ARTHRITIS
     Dosage: 100 MG (1 IN 1 D) ORAL
     Route: 048
  3. HYDROXYCHLOROQUINE PHOSPHATE [Suspect]
     Indication: ARTHRITIS
     Dosage: 200 MG (1 IN 1 D) ORAL
     Route: 048
     Dates: start: 20040707

REACTIONS (2)
  - HEPATITIS B [None]
  - PROTHROMBIN LEVEL ABNORMAL [None]
